FAERS Safety Report 9975995 (Version 1)
Quarter: 2014Q1

REPORT INFORMATION
  Report Type: Spontaneous
  Country: ES (occurrence: ES)
  Receive Date: 20140306
  Receipt Date: 20140306
  Transmission Date: 20141002
  Serious: Yes (Other)
  Sender: FDA-Public Use
  Company Number: ES-ALLERGAN-1403764US

PATIENT
  Age: 82 Year
  Sex: Male

DRUGS (1)
  1. OZURDEX [Suspect]
     Indication: MACULAR OEDEMA
     Dosage: 0.7 MG, SINGLE
     Route: 031

REACTIONS (6)
  - Macular fibrosis [Unknown]
  - Posterior capsule rupture [Unknown]
  - Complication of device insertion [Unknown]
  - Intraocular pressure increased [Recovered/Resolved]
  - Cataract [Unknown]
  - Drug ineffective [Unknown]
